FAERS Safety Report 4793431-1 (Version None)
Quarter: 2005Q4

REPORT INFORMATION
  Report Type: 
  Country: None (occurrence: None)
  Receive Date: 20051011
  Receipt Date: 20041102
  Transmission Date: 20060501
  Serious: No
  Sender: FDA-Public Use
  Company Number: US-BRISTOL-MYERS SQUIBB COMPANY-12753885

PATIENT
  Sex: Female

DRUGS (1)
  1. GLUCOPHAGE XR [Suspect]
     Indication: DIABETES MELLITUS
     Dosage: DID NOT TAKE DOSE ON 02-NOV-2004
     Route: 048

REACTIONS (3)
  - HEADACHE [None]
  - PAIN IN EXTREMITY [None]
  - PERIPHERAL COLDNESS [None]
